FAERS Safety Report 20620184 (Version 1)
Quarter: 2022Q1

REPORT INFORMATION
  Report Type: Spontaneous
  Country: US (occurrence: None)
  Receive Date: 20220321
  Receipt Date: 20220321
  Transmission Date: 20220423
  Serious: No
  Sender: FDA-Public Use
  Company Number: None

PATIENT
  Age: 71 Year
  Sex: Female
  Weight: 56.25 kg

DRUGS (4)
  1. OTREXUP [Suspect]
     Active Substance: METHOTREXATE
     Indication: Psoriasis
     Dosage: INJECT 20MG (0.4ML) SUBCUTANEOUSLY ONCE WEEKLY ON THE SAME DAY EACH WEEK AS DIRECTED?
     Route: 058
     Dates: start: 202112
  2. OTREXUP [Suspect]
     Active Substance: METHOTREXATE
     Indication: Crystal arthropathy
  3. OTREXUP [Suspect]
     Active Substance: METHOTREXATE
     Indication: Arthralgia
  4. OTREXUP [Suspect]
     Active Substance: METHOTREXATE
     Indication: Epicondylitis

REACTIONS (2)
  - Urinary tract infection [None]
  - Blood electrolytes decreased [None]
